FAERS Safety Report 6332094-0 (Version None)
Quarter: 2009Q3

REPORT INFORMATION
  Report Type: 
  Country: None (occurrence: None)
  Receive Date: 20090828
  Receipt Date: 20070521
  Transmission Date: 20100115
  Serious: Yes (Other)
  Sender: FDA-Public Use
  Company Number: US-ASTRAZENECA-2006UW25185

PATIENT
  Age: 42 Year
  Sex: Male
  Weight: 103.9 kg

DRUGS (20)
  1. SEROQUEL [Suspect]
     Indication: SLEEP DISORDER
     Route: 048
     Dates: start: 20000101
  2. SEROQUEL [Suspect]
     Dosage: 200MG-800MG
     Route: 048
     Dates: start: 20021213
  3. PROPRANOLOL [Concomitant]
  4. TRAZODONE HCL [Concomitant]
  5. TRAZODONE HCL [Concomitant]
     Dosage: 150-AT NIGHT
     Dates: start: 20021213
  6. XANAX [Concomitant]
     Dates: start: 20070315
  7. INDERAL [Concomitant]
     Dosage: 20- TWO TIMES A DAY
     Dates: start: 20070315
  8. RESTORIL [Concomitant]
     Dosage: 30-AT NIGHT
     Dates: start: 20070315
  9. SINEQUAN [Concomitant]
     Dosage: 50MG-100MG
     Dates: start: 20030618
  10. HYDROCODONE [Concomitant]
     Dates: start: 20021213
  11. PROTONIX [Concomitant]
     Dates: start: 20021213
  12. VIOXX [Concomitant]
     Dosage: 20MG-50MG
     Dates: start: 20021213
  13. LEXAPRO [Concomitant]
     Dates: start: 20021210
  14. ATIVAN [Concomitant]
     Dosage: 0.5-THREE TIMES A DAY
     Dates: start: 20021210
  15. AMARYL [Concomitant]
     Dates: start: 20030114
  16. PRILOSEC [Concomitant]
     Dosage: 20- DAILY
     Dates: start: 20011002
  17. CARTIA XT [Concomitant]
     Dosage: 240 MG-360 MG
     Dates: start: 20030114
  18. TOPROL-XL [Concomitant]
     Dosage: 25- DAILY
     Dates: start: 20030710
  19. ALTACE [Concomitant]
     Dosage: 10-DAILY
     Dates: start: 20030114
  20. KLONOPIN [Concomitant]
     Indication: SLEEP DISORDER
     Dates: start: 20030709

REACTIONS (4)
  - DIABETES MELLITUS [None]
  - DIABETIC NEUROPATHY [None]
  - TYPE 1 DIABETES MELLITUS [None]
  - TYPE 2 DIABETES MELLITUS [None]
